FAERS Safety Report 4855184-8 (Version None)
Quarter: 2005Q4

REPORT INFORMATION
  Report Type: 
  Country: None (occurrence: None)
  Receive Date: 20051215
  Receipt Date: 20051005
  Transmission Date: 20060501
  Serious: Yes (Disabling)
  Sender: FDA-Public Use
  Company Number: US-MERCK-0510USA04483

PATIENT
  Age: 39 Year
  Sex: Male
  Weight: 91 kg

DRUGS (3)
  1. VIOXX [Suspect]
     Indication: GROIN PAIN
     Route: 048
     Dates: start: 20001208, end: 20001214
  2. ATIVAN [Concomitant]
     Route: 065
  3. VICODIN [Concomitant]
     Route: 065
     Dates: start: 20001209

REACTIONS (19)
  - ABDOMINAL DISCOMFORT [None]
  - ANXIETY [None]
  - BACK PAIN [None]
  - CHEST PAIN [None]
  - DISTURBANCE IN ATTENTION [None]
  - DIZZINESS [None]
  - DYSPNOEA [None]
  - EPIDIDYMITIS [None]
  - FATIGUE [None]
  - GROIN PAIN [None]
  - HOT FLUSH [None]
  - HYPERVENTILATION [None]
  - HYPOAESTHESIA [None]
  - MUSCLE SPASMS [None]
  - PAIN IN EXTREMITY [None]
  - PERIPHERAL COLDNESS [None]
  - TESTICULAR PAIN [None]
  - THROMBOSIS [None]
  - VIRAL INFECTION [None]
